FAERS Safety Report 7760922-0 (Version None)
Quarter: 2011Q3

REPORT INFORMATION
  Report Type: 
  Country: None (occurrence: None)
  Receive Date: 20110919
  Receipt Date: 20110823
  Transmission Date: 20111222
  Serious: Yes (Death, Hospitalization)
  Sender: FDA-Public Use
  Company Number: NL-GENENTECH-322751

PATIENT
  Sex: Female
  Weight: 66 kg

DRUGS (23)
  1. RITUXIMAB [Suspect]
     Indication: DIFFUSE LARGE B-CELL LYMPHOMA
     Dosage: 637 MG, UNK
     Route: 042
     Dates: start: 20110729
  2. PREDNISONE [Suspect]
     Dosage: 10 MG, UNK
     Route: 048
     Dates: start: 20110819, end: 20110819
  3. DOXORUBICIN HCL [Suspect]
     Dosage: 80 MG, UNK
     Route: 042
     Dates: start: 20110812, end: 20110812
  4. NEUPOGEN [Suspect]
     Dosage: 6 MG, UNK
     Route: 058
     Dates: start: 20110813, end: 20110813
  5. COTRIM [Concomitant]
     Indication: PROPHYLAXIS
     Dosage: UNK
     Route: 048
     Dates: start: 20110725, end: 20110818
  6. PREDNISONE [Suspect]
     Indication: DIFFUSE LARGE B-CELL LYMPHOMA
     Dosage: 100 MG, UNK
     Route: 048
     Dates: start: 20110725, end: 20110802
  7. PREDNISONE [Suspect]
     Dosage: 25 MG, UNK
     Route: 048
     Dates: start: 20110804, end: 20110804
  8. PREDNISONE [Suspect]
     Dosage: 50 MG, UNK
     Route: 048
     Dates: start: 20110817, end: 20110817
  9. ASCAL [Concomitant]
     Indication: CORONARY ARTERY DISEASE
     Dosage: UNK
     Route: 048
     Dates: start: 20020925, end: 20110818
  10. CYCLOPHOSPHAMIDE [Suspect]
     Indication: DIFFUSE LARGE B-CELL LYMPHOMA
     Dosage: 1275 MG, UNK
     Route: 042
     Dates: start: 20110729
  11. PREDNISONE [Suspect]
     Dosage: 100 MG, UNK
     Route: 048
     Dates: start: 20110812, end: 20110816
  12. CYCLOPHOSPHAMIDE [Suspect]
     Dosage: 1230 MG, UNK
     Route: 042
     Dates: start: 20110812, end: 20110812
  13. VALACICLOVIR [Concomitant]
     Indication: PROPHYLAXIS
     Dosage: UNK
     Route: 048
     Dates: start: 20110725, end: 20110818
  14. RITUXIMAB [Suspect]
     Dosage: 615 MG, UNK
     Route: 042
     Dates: start: 20110812, end: 20110819
  15. DOXORUBICIN HCL [Suspect]
     Indication: DIFFUSE LARGE B-CELL LYMPHOMA
     Dosage: 85 MG, UNK
     Route: 042
     Dates: start: 20110729
  16. EZETIMIBE [Concomitant]
     Indication: HYPERCHOLESTEROLAEMIA
     Dosage: UNK
     Route: 048
     Dates: start: 20101018, end: 20110818
  17. PREDNISONE [Suspect]
     Dosage: 25 MG, UNK
     Route: 048
     Dates: start: 20110818, end: 20110818
  18. VINCRISTINE [Suspect]
     Indication: DIFFUSE LARGE B-CELL LYMPHOMA
     Dosage: 2 MG, UNK
     Route: 042
     Dates: start: 20110729
  19. VINCRISTINE [Suspect]
     Dosage: 2 MG, UNK
     Route: 042
     Dates: start: 20110812, end: 20110812
  20. LOSARTAN POTASSIUM [Concomitant]
     Indication: HYPERTENSION
     Dosage: UNK
     Route: 048
     Dates: start: 20030805, end: 20110818
  21. PREDNISONE [Suspect]
     Dosage: 50 MG, UNK
     Route: 048
     Dates: start: 20110803, end: 20110803
  22. PREDNISONE [Suspect]
     Dosage: 10 MG, UNK
     Route: 048
     Dates: start: 20110805, end: 20110805
  23. NEUPOGEN [Suspect]
     Indication: DIFFUSE LARGE B-CELL LYMPHOMA
     Dosage: 6 MG, UNK
     Route: 058
     Dates: start: 20110730

REACTIONS (3)
  - VOMITING [None]
  - GASTROINTESTINAL HAEMORRHAGE [None]
  - NAUSEA [None]
